FAERS Safety Report 8785741 (Version 3)
Quarter: 2019Q3

REPORT INFORMATION
  Report Type: Spontaneous
  Country: FR (occurrence: FR)
  Receive Date: 20120914
  Receipt Date: 20190903
  Transmission Date: 20191005
  Serious: Yes (Death)
  Sender: FDA-Public Use
  Company Number: FR-SANOFI-AVENTIS-2012SA064074

PATIENT
  Age: 68 Year
  Sex: Female
  Weight: 81 kg

DRUGS (4)
  1. DEXAMETHASONE. [Concomitant]
     Active Substance: DEXAMETHASONE
     Dosage: 20 MG,UNK
     Route: 042
     Dates: start: 20120814, end: 20120814
  2. RANITIDINE. [Concomitant]
     Active Substance: RANITIDINE
     Dosage: 50 MG,UNK
     Route: 042
     Dates: start: 20120814, end: 20120814
  3. TAXOTERE [Suspect]
     Active Substance: DOCETAXEL
     Indication: BREAST CANCER
     Dosage: 180 MG, TOTAL
     Route: 042
     Dates: start: 20120814, end: 20120814
  4. ONDANSETRON [Concomitant]
     Active Substance: ONDANSETRON
     Dosage: 8 MG,UNK
     Route: 042
     Dates: start: 20120814, end: 20120814

REACTIONS (2)
  - Coma [Fatal]
  - Death [Fatal]

NARRATIVE: CASE EVENT DATE: 20120823
